FAERS Safety Report 13935393 (Version 4)
Quarter: 2018Q2

REPORT INFORMATION
  Report Type: Report from Study
  Country: None (occurrence: US)
  Receive Date: 20170905
  Receipt Date: 20180425
  Transmission Date: 20180711
  Serious: Yes (Other)
  Sender: FDA-Public Use
  Company Number: US-ABBVIE-17K-163-1958652-00

PATIENT
  Sex: Male

DRUGS (6)
  1. HUMIRA [Suspect]
     Active Substance: ADALIMUMAB
     Indication: PSORIASIS
  2. POTASSIUM CITRATE. [Concomitant]
     Active Substance: POTASSIUM CITRATE
     Indication: NEPHROLITHIASIS
  3. ALLOPURINOL. [Concomitant]
     Active Substance: ALLOPURINOL
     Indication: RENAL LITHIASIS PROPHYLAXIS
  4. FINASTERIDE. [Concomitant]
     Active Substance: FINASTERIDE
     Indication: PROSTATE CANCER
  5. HUMIRA [Suspect]
     Active Substance: ADALIMUMAB
     Indication: PSORIATIC ARTHROPATHY
     Route: 058
     Dates: start: 2014
  6. METOPROLOL. [Concomitant]
     Active Substance: METOPROLOL
     Indication: HYPERTENSION

REACTIONS (12)
  - Nephrolithiasis [Unknown]
  - Insomnia [Unknown]
  - Drug ineffective [Unknown]
  - Pharyngitis [Recovered/Resolved]
  - Fatigue [Unknown]
  - Depressed mood [Unknown]
  - Eye oedema [Not Recovered/Not Resolved]
  - Bronchitis [Unknown]
  - Feeling abnormal [Unknown]
  - Dyspnoea [Unknown]
  - Urine flow decreased [Unknown]
  - Ileostomy [Unknown]

NARRATIVE: CASE EVENT DATE: 2014
